FAERS Safety Report 9010106 (Version 6)
Quarter: 2013Q2

REPORT INFORMATION
  Report Type: Spontaneous
  Country: US (occurrence: US)
  Receive Date: 20130110
  Receipt Date: 20130426
  Transmission Date: 20140414
  Serious: Yes (Hospitalization, Disabling, Other)
  Sender: FDA-Public Use
  Company Number: US-009507513-1301USA000446

PATIENT
  Sex: Female
  Weight: 70.3 kg

DRUGS (11)
  1. FOSAMAX [Suspect]
     Indication: OSTEOPOROSIS
     Dosage: 70 MG, QW
     Route: 048
     Dates: start: 2001, end: 2009
  2. FOSAMAX [Suspect]
     Indication: LUMBAR VERTEBRAL FRACTURE
  3. ALENDRONATE SODIUM [Suspect]
     Indication: OSTEOPOROSIS
     Dosage: 70 MG, QW
     Dates: start: 2008, end: 2010
  4. ALENDRONATE SODIUM [Suspect]
     Indication: LUMBAR VERTEBRAL FRACTURE
  5. GLUCOTROL [Concomitant]
     Indication: TYPE 1 DIABETES MELLITUS
     Dosage: UNK
     Dates: start: 200009, end: 2009
  6. LANTUS [Concomitant]
     Indication: TYPE 1 DIABETES MELLITUS
     Dosage: UNK
     Dates: start: 2007
  7. ACTOS [Concomitant]
     Indication: TYPE 1 DIABETES MELLITUS
     Dosage: UNK
     Dates: start: 2009, end: 2009
  8. GLUCOPHAGE [Concomitant]
     Indication: TYPE 1 DIABETES MELLITUS
     Dosage: 500 MG, BID
     Dates: start: 20060414, end: 2007
  9. JANUVIA [Concomitant]
     Indication: TYPE 1 DIABETES MELLITUS
     Dosage: UNK
     Dates: start: 2007, end: 2008
  10. LYRICA [Concomitant]
     Indication: TYPE 1 DIABETES MELLITUS
     Dosage: UNK
     Dates: start: 2008, end: 2008
  11. PROMETHAZINE [Concomitant]
     Indication: HYPERSENSITIVITY
     Dosage: UNK
     Dates: start: 2006, end: 2006

REACTIONS (107)
  - Gastrooesophageal reflux disease [Unknown]
  - Femur fracture [Not Recovered/Not Resolved]
  - Open reduction of fracture [Not Recovered/Not Resolved]
  - Low turnover osteopathy [Not Recovered/Not Resolved]
  - Osteoporosis [Not Recovered/Not Resolved]
  - Femur fracture [Unknown]
  - Femur fracture [Not Recovered/Not Resolved]
  - Coronary artery bypass [Unknown]
  - Renal failure chronic [Not Recovered/Not Resolved]
  - Coronary angioplasty [Unknown]
  - Bladder catheterisation [Unknown]
  - Cholecystectomy [Unknown]
  - Appendicectomy [Unknown]
  - Myocardial infarction [Unknown]
  - Catheterisation cardiac [Unknown]
  - Carpal tunnel decompression [Unknown]
  - Carotid endarterectomy [Unknown]
  - Mitral valve replacement [Unknown]
  - Pancreatitis [Unknown]
  - Mitral valve repair [Unknown]
  - Cellulitis [Recovering/Resolving]
  - Subcutaneous haematoma [Recovering/Resolving]
  - Deep vein thrombosis [Recovering/Resolving]
  - Incisional drainage [Recovering/Resolving]
  - Stress fracture [Not Recovered/Not Resolved]
  - Adverse event [Not Recovered/Not Resolved]
  - Pain [Not Recovered/Not Resolved]
  - Quality of life decreased [Not Recovered/Not Resolved]
  - Pain [Unknown]
  - Carotid artery stenosis [Unknown]
  - Hallucination [Unknown]
  - Subcutaneous haematoma [Unknown]
  - Inflammation [Unknown]
  - Nasopharyngitis [Unknown]
  - Exostosis [Unknown]
  - Infection [Unknown]
  - Infection [Unknown]
  - Infection [Unknown]
  - Hypertension [Unknown]
  - Urinary tract infection [Unknown]
  - Hypothyroidism [Unknown]
  - Infection [Unknown]
  - Infection [Unknown]
  - Infection [Unknown]
  - Infection [Unknown]
  - Nervousness [Unknown]
  - Calcium deficiency [Unknown]
  - Anxiety [Unknown]
  - Hypercholesterolaemia [Unknown]
  - Adverse event [Unknown]
  - Ulcer [Unknown]
  - Gastrointestinal disorder [Unknown]
  - Fall [Unknown]
  - Aortic calcification [Unknown]
  - Contusion [Unknown]
  - Spinal osteoarthritis [Unknown]
  - Cystitis escherichia [Unknown]
  - Contusion [Unknown]
  - Joint injury [Unknown]
  - Adverse event [Unknown]
  - Blood triglycerides increased [Unknown]
  - Hypertonic bladder [Unknown]
  - Hysterectomy [Unknown]
  - Stress fracture [Unknown]
  - Urinary incontinence [Not Recovered/Not Resolved]
  - Coronary artery disease [Unknown]
  - Osteoarthritis [Unknown]
  - Bradyarrhythmia [Unknown]
  - Arthritis [Unknown]
  - Osteopenia [Unknown]
  - Diabetic neuropathy [Unknown]
  - Normochromic normocytic anaemia [Unknown]
  - Aortic aneurysm [Unknown]
  - Blood potassium increased [Unknown]
  - Angina pectoris [Unknown]
  - Diverticulum [Unknown]
  - Chest pain [Unknown]
  - Diabetic nephropathy [Unknown]
  - Panic attack [Unknown]
  - Rib fracture [Unknown]
  - Scoliosis [Unknown]
  - Thoracic vertebral fracture [Unknown]
  - Osteoarthritis [Unknown]
  - Lumbar vertebral fracture [Unknown]
  - Lumbar vertebral fracture [Unknown]
  - Intervertebral disc degeneration [Unknown]
  - Iron deficiency anaemia [Not Recovered/Not Resolved]
  - White blood cells urine [Unknown]
  - Urine analysis abnormal [Unknown]
  - Hypovolaemia [Unknown]
  - Myocardial ischaemia [Not Recovered/Not Resolved]
  - Hypomagnesaemia [Unknown]
  - Tenderness [Unknown]
  - Limb injury [Unknown]
  - Anaemia vitamin B12 deficiency [Unknown]
  - Syncope [Unknown]
  - Urinary tract infection [Unknown]
  - Hyperthyroidism [Unknown]
  - Vitamin B12 deficiency [Not Recovered/Not Resolved]
  - Cataract operation [Unknown]
  - Depression [Unknown]
  - Vascular calcification [Unknown]
  - Oedema [Unknown]
  - Off label use [Unknown]
  - Dyspepsia [Unknown]
  - Constipation [Not Recovered/Not Resolved]
  - Drug ineffective [Unknown]
